FAERS Safety Report 7266221-8 (Version None)
Quarter: 2011Q1

REPORT INFORMATION
  Report Type: 
  Country: None (occurrence: None)
  Receive Date: 20110131
  Receipt Date: 20101220
  Transmission Date: 20110831
  Serious: No
  Sender: FDA-Public Use
  Company Number: US-ABBOTT-10P-163-0692598-00

PATIENT
  Sex: Male

DRUGS (2)
  1. LUPRON DEPOT [Suspect]
     Indication: PRODUCT USED FOR UNKNOWN INDICATION
     Dosage: FOR THE PAST THREE YEARS
  2. CASODEX [Concomitant]
     Indication: PRODUCT USED FOR UNKNOWN INDICATION
     Dosage: FOR THE PAST TWO YEARS

REACTIONS (6)
  - NIPPLE PAIN [None]
  - CHILLS [None]
  - PAIN [None]
  - HOT FLUSH [None]
  - DRY SKIN [None]
  - TINEA CRURIS [None]
